FAERS Safety Report 4818080-8 (Version None)
Quarter: 2005Q4

REPORT INFORMATION
  Report Type: 
  Country: None (occurrence: None)
  Receive Date: 20051102
  Receipt Date: 20051024
  Transmission Date: 20060501
  Serious: Yes (Other)
  Sender: FDA-Public Use
  Company Number: US-GLAXOSMITHKLINE-A0579376A

PATIENT
  Age: 60 Year
  Sex: Female

DRUGS (6)
  1. AVANDAMET [Suspect]
     Route: 048
  2. GLUCOPHAGE [Concomitant]
  3. GLYBURIDE [Concomitant]
  4. PLAVIX [Concomitant]
  5. LISINOPRIL [Concomitant]
  6. ZETIA [Concomitant]

REACTIONS (5)
  - DIARRHOEA [None]
  - DRUG ADMINISTRATION ERROR [None]
  - INSOMNIA [None]
  - PSORIASIS [None]
  - RESTLESS LEGS SYNDROME [None]
